FAERS Safety Report 9718658 (Version 4)
Quarter: 2014Q1

REPORT INFORMATION
  Report Type: Report from Study
  Country: AU (occurrence: AU)
  Receive Date: 20131127
  Receipt Date: 20140128
  Transmission Date: 20141002
  Serious: Yes (Other)
  Sender: FDA-Public Use
  Company Number: AU-VERTEX PHARMACEUTICALS INC-2013-011269

PATIENT
  Age: 32 Year
  Sex: Male
  Weight: 71 kg

DRUGS (37)
  1. VX-809 FDC [Suspect]
     Indication: CYSTIC FIBROSIS
     Dosage: 400 MG, Q 12 HRS
     Route: 048
     Dates: start: 20130607, end: 20131120
  2. VX-770 FDC [Suspect]
     Indication: CYSTIC FIBROSIS
     Dosage: 250 MG, Q 12 HRS
     Route: 048
     Dates: start: 20130607, end: 20131120
  3. MEROPENEM [Concomitant]
     Indication: INFECTIVE PULMONARY EXACERBATION OF CYSTIC FIBROSIS
     Dosage: 1 G, TID
     Route: 042
     Dates: start: 20130702, end: 20130717
  4. MEROPENEM [Concomitant]
     Dosage: 1 G, TID
     Route: 042
     Dates: start: 20130724, end: 20130808
  5. MEROPENEM [Concomitant]
     Dosage: 2 G, TID
     Dates: start: 20130812, end: 20130826
  6. PROBENECID [Concomitant]
     Indication: INFECTIVE PULMONARY EXACERBATION OF CYSTIC FIBROSIS
     Dosage: 500 G, TID
     Route: 048
     Dates: start: 20130702, end: 20130717
  7. PROBENECID [Concomitant]
     Dosage: 500 G, TID
     Route: 048
     Dates: start: 20130724, end: 20130805
  8. PROBENECID [Concomitant]
     Dosage: 500 G, TID
     Route: 048
     Dates: start: 20130812, end: 20130826
  9. AUGMENTIN DUO [Concomitant]
     Indication: CYSTIC FIBROSIS LUNG
     Dosage: 1 TAB BID
     Route: 048
     Dates: start: 2009, end: 20130702
  10. AUGMENTIN DUO [Concomitant]
     Dosage: 1 TAB BID
     Dates: start: 20130718, end: 20130723
  11. AUGMENTIN DUO [Concomitant]
     Dosage: 1 TABLET, BID
     Route: 048
     Dates: start: 20130809, end: 20130812
  12. AUGMENTIN DUO [Concomitant]
     Dosage: 1 TABLET, BID
     Route: 048
     Dates: start: 20130902
  13. COLISTIN [Concomitant]
     Indication: CYSTIC FIBROSIS LUNG
     Dosage: 2 X 10EXP6 UNITS QD
     Route: 055
     Dates: start: 2004
  14. COLISTIN [Concomitant]
     Dosage: 2 X 10EXP6 UNITS BID
     Route: 055
     Dates: start: 20130902, end: 20131011
  15. COLISTIN [Concomitant]
     Dosage: 1 X 10EXP6 UNITS QD
     Route: 055
     Dates: start: 20131012
  16. COLISTIN [Concomitant]
     Dosage: 2 X 10EXP6 UNITS QD
     Route: 055
     Dates: start: 20130718, end: 20130723
  17. PARACETAMOL [Concomitant]
     Indication: INFECTIVE PULMONARY EXACERBATION OF CYSTIC FIBROSIS
     Dosage: 1 G, SINGLE
     Route: 048
     Dates: start: 20130617, end: 20130617
  18. PARACETAMOL [Concomitant]
     Indication: INSOMNIA
     Dosage: 1 G PRN
     Route: 048
     Dates: start: 20130621, end: 20130804
  19. PARACETAMOL [Concomitant]
     Dosage: 1 G, PRN
     Route: 048
     Dates: start: 20130718, end: 20130723
  20. PARACETAMOL [Concomitant]
     Dosage: 1 G, PRN
     Route: 048
     Dates: start: 20130812, end: 20130825
  21. TOBI [Concomitant]
     Indication: CYSTIC FIBROSIS LUNG
     Dosage: 300 MG, BID
     Route: 048
     Dates: start: 20130702, end: 20130717
  22. TOBI [Concomitant]
     Dosage: 300 MG, BID
     Route: 048
     Dates: start: 20130724, end: 20130902
  23. TOBI [Concomitant]
     Dosage: 300 MG, BID
     Route: 048
     Dates: start: 20131012, end: 20131021
  24. VITAMIN K [Concomitant]
     Indication: INFECTIVE PULMONARY EXACERBATION OF CYSTIC FIBROSIS
     Dosage: 3 TABLETS, UNK
     Route: 048
     Dates: start: 20130615, end: 20130615
  25. VITAMIN K [Concomitant]
     Indication: HAEMOPTYSIS
     Dosage: 20 G, SINGLE
     Route: 048
     Dates: start: 20130628, end: 20130628
  26. TAZOCIN [Concomitant]
     Indication: INFECTIVE PULMONARY EXACERBATION OF CYSTIC FIBROSIS
     Dosage: 4-5 G TID
     Route: 042
     Dates: start: 20130724, end: 20130805
  27. CIPROFLOXACIN [Concomitant]
     Indication: INFECTIVE PULMONARY EXACERBATION OF CYSTIC FIBROSIS
     Dosage: 750 MG, BID
     Route: 048
     Dates: start: 20130812, end: 20130902
  28. AZTREONAM [Concomitant]
     Indication: INFECTIVE PULMONARY EXACERBATION OF CYSTIC FIBROSIS
     Dosage: 3 G, TID
     Route: 042
     Dates: start: 20130812, end: 20130902
  29. AZITHROMYCIN [Concomitant]
     Indication: CYSTIC FIBROSIS LUNG
     Dosage: 250 MG, QD
     Route: 048
     Dates: start: 2004
  30. HYPERTONIC SALINE SOLUTION [Concomitant]
     Indication: CYSTIC FIBROSIS LUNG
     Dosage: 6 % BID
     Route: 055
     Dates: start: 2004
  31. PULMOZYME [Concomitant]
     Indication: CYSTIC FIBROSIS LUNG
     Dosage: 2-5 MG QD
     Route: 055
     Dates: start: 1998
  32. VITAMIN ABDECK [Concomitant]
     Indication: NUTRITIONAL SUPPLEMENTATION
     Dosage: 2 CAPS, QD
     Route: 048
     Dates: start: 2009
  33. CREON FORTE [Concomitant]
     Indication: PANCREATIC INSUFFICIENCY
     Dosage: 2-3 CAPSULES WITH MEALS AND SNACKS
     Route: 048
     Dates: start: 1999
  34. VENTOLIN [Concomitant]
     Indication: CYSTIC FIBROSIS LUNG
     Dosage: 5 MG, TID
     Route: 055
     Dates: start: 1990
  35. GLUCOLYTE [Concomitant]
     Indication: ELECTROLYTE SUBSTITUTION THERAPY
     Dosage: 1 SACHET BID
     Dates: start: 1999
  36. CURCUMIN [Concomitant]
     Indication: PHYTOTHERAPY
     Dosage: 1 TABLET, TID
     Route: 048
     Dates: start: 2005
  37. BETAMETHASONE [Concomitant]
     Indication: CUTANEOUS LUPUS ERYTHEMATOSUS
     Dosage: UNK, PRN
     Route: 061
     Dates: start: 2009

REACTIONS (1)
  - Electrocardiogram T wave inversion [Recovered/Resolved]
